FAERS Safety Report 9602535 (Version 1)
Quarter: 2013Q4

REPORT INFORMATION
  Report Type: Spontaneous
  Country: US (occurrence: US)
  Receive Date: 20131007
  Receipt Date: 20131007
  Transmission Date: 20140711
  Serious: No
  Sender: FDA-Public Use
  Company Number: US-PFIZER INC-2013282099

PATIENT
  Age: 47 Year
  Sex: Female

DRUGS (6)
  1. XANAX [Suspect]
     Dosage: UNK
  2. GABAPENTIN [Suspect]
     Dosage: UNK
  3. LEVOTHYROXINE SODIUM [Suspect]
     Dosage: UNK
  4. NIACIN [Suspect]
     Dosage: UNK
  5. VALTREX [Suspect]
     Dosage: UNK
  6. DILAUDID [Suspect]
     Dosage: UNK

REACTIONS (1)
  - Drug hypersensitivity [Unknown]
